FAERS Safety Report 15704449 (Version 3)
Quarter: 2019Q1

REPORT INFORMATION
  Report Type: Report from Study
  Country: US (occurrence: US)
  Receive Date: 20181210
  Receipt Date: 20190215
  Transmission Date: 20190417
  Serious: Yes (Death, Hospitalization)
  Sender: FDA-Public Use
  Company Number: PHEH2018US051644

PATIENT
  Sex: Female
  Weight: 57.5 kg

DRUGS (1)
  1. AFINITOR [Suspect]
     Active Substance: EVEROLIMUS
     Indication: ENDOMETRIAL CANCER RECURRENT
     Dosage: 5 MG, UNK
     Route: 048
     Dates: end: 201812

REACTIONS (4)
  - Product use in unapproved indication [Unknown]
  - General physical health deterioration [Unknown]
  - Endometrial cancer recurrent [Fatal]
  - Malignant neoplasm progression [Fatal]
